FAERS Safety Report 7343805-X (Version None)
Quarter: 2011Q1

REPORT INFORMATION
  Report Type: 
  Country: None (occurrence: None)
  Receive Date: 20110310
  Receipt Date: 20110302
  Transmission Date: 20110831
  Serious: Yes (Hospitalization)
  Sender: FDA-Public Use
  Company Number: BR-ROCHE-727980

PATIENT
  Sex: Female
  Weight: 75 kg

DRUGS (6)
  1. TOCILIZUMAB [Suspect]
     Indication: RHEUMATOID ARTHRITIS
     Dosage: ROUTE: ENDOVENOUS, FORM: INFUSION; HAD RECEIVED TWO INFUSIONS
     Route: 042
     Dates: start: 20100507
  2. ARAVA [Concomitant]
  3. ACETYLSALICYLIC ACID [Concomitant]
  4. ENALAPRIL MALEATE [Concomitant]
  5. SINVALIP [Concomitant]
  6. CATAFLAM [Suspect]
     Route: 065

REACTIONS (3)
  - PYREXIA [None]
  - PNEUMONIA [None]
  - ANAEMIA [None]
